FAERS Safety Report 22193947 (Version 1)
Quarter: 2023Q2

REPORT INFORMATION
  Report Type: Report from Study
  Country: US (occurrence: US)
  Receive Date: 20230410
  Receipt Date: 20230410
  Transmission Date: 20230722
  Serious: Yes (Hospitalization)
  Sender: FDA-Public Use
  Company Number: US-ABBVIE-4720937

PATIENT
  Age: 39 Year
  Sex: Female

DRUGS (1)
  1. RINVOQ [Suspect]
     Active Substance: UPADACITINIB
     Indication: Product used for unknown indication
     Route: 048
     Dates: start: 20220721

REACTIONS (6)
  - Inflammation [Not Recovered/Not Resolved]
  - Decreased appetite [Unknown]
  - Weight decreased [Unknown]
  - Urine analysis abnormal [Unknown]
  - Diarrhoea [Unknown]
  - Muscular weakness [Unknown]

NARRATIVE: CASE EVENT DATE: 20230301
